FAERS Safety Report 14559173 (Version 1)
Quarter: 2018Q1

REPORT INFORMATION
  Report Type: Spontaneous
  Country: TR (occurrence: TR)
  Receive Date: 20180221
  Receipt Date: 20180221
  Transmission Date: 20180509
  Serious: Yes (Other)
  Sender: FDA-Public Use
  Company Number: TR-REGENERON PHARMACEUTICALS, INC.-2018-15375

PATIENT

DRUGS (3)
  1. AFLIBERCEPT IAI [Suspect]
     Active Substance: AFLIBERCEPT
     Indication: NEOVASCULAR AGE-RELATED MACULAR DEGENERATION
     Dosage: BILATERAL, 2 MG, THREE-MONTH LOADING DOSE
  2. AFLIBERCEPT IAI [Suspect]
     Active Substance: AFLIBERCEPT
     Dosage: BILATERAL, PRN. A TOTAL OF FIVE INJECTIONS WERE PERFORMED DURING THE 9 MONTH FOLLOW-UP PERIOD
  3. RANIBIZUMAB. [Concomitant]
     Active Substance: RANIBIZUMAB
     Indication: NEOVASCULAR AGE-RELATED MACULAR DEGENERATION
     Dosage: BILATERAL, 3-MONTH LOADING DOSE
     Route: 031

REACTIONS (1)
  - Macular degeneration [Unknown]
